FAERS Safety Report 7495448-5 (Version None)
Quarter: 2011Q2

REPORT INFORMATION
  Report Type: 
  Country: None (occurrence: None)
  Receive Date: 20110523
  Receipt Date: 20110503
  Transmission Date: 20111010
  Serious: No
  Sender: FDA-Public Use
  Company Number: US-TYCO HEALTHCARE/MALLINCKRODT-T201100893

PATIENT
  Sex: Female

DRUGS (3)
  1. LYRICA [Concomitant]
     Dosage: 100 MG, TID
  2. FENTANYL [Concomitant]
     Dosage: 25 UG/HR, UNK
     Route: 062
     Dates: start: 20100801, end: 20110401
  3. FENTANYL-100 [Suspect]
     Indication: CYSTITIS
     Dosage: 25 UG/HR ONE EVERY 48 HRS
     Route: 062
     Dates: start: 20110401

REACTIONS (2)
  - WITHDRAWAL SYNDROME [None]
  - DRUG INEFFECTIVE [None]
